FAERS Safety Report 5407624-3 (Version None)
Quarter: 2007Q3

REPORT INFORMATION
  Report Type: 
  Country: None (occurrence: None)
  Receive Date: 20070713
  Receipt Date: 20070529
  Transmission Date: 20080115
  Serious: No
  Sender: FDA-Public Use
  Company Number: 2007SP002015

PATIENT
  Age: 73 Year
  Sex: Female
  Weight: 77.1115 kg

DRUGS (9)
  1. LUNESTA [Suspect]
     Indication: INSOMNIA
     Dosage: 2 MG; HS; ORAL
     Route: 048
     Dates: start: 20070527
  2. BENICAR [Concomitant]
  3. METOPROLOL SUCCINATE [Concomitant]
  4. ZOLOFT [Concomitant]
  5. DOC-Q-LACE [Concomitant]
  6. SIMVASTATIN [Concomitant]
  7. SYNTHROID [Concomitant]
  8. ALEVE [Concomitant]
  9. ASPIRIN [Concomitant]

REACTIONS (2)
  - DRUG INEFFECTIVE [None]
  - INSOMNIA [None]
